FAERS Safety Report 16627579 (Version 1)
Quarter: 2019Q3

REPORT INFORMATION
  Report Type: Spontaneous
  Country: US (occurrence: US)
  Receive Date: 20190724
  Receipt Date: 20190724
  Transmission Date: 20191004
  Serious: No
  Sender: FDA-Public Use
  Company Number: US-BRECKENRIDGE PHARMACEUTICAL, INC.-2071274

PATIENT
  Sex: Female

DRUGS (1)
  1. DULOXETINE. [Suspect]
     Active Substance: DULOXETINE
     Indication: PANIC ATTACK
     Route: 048

REACTIONS (6)
  - Restlessness [None]
  - Hyperhidrosis [None]
  - Syncope [None]
  - Vomiting [None]
  - Mental status changes [None]
  - Nausea [None]
